FAERS Safety Report 17504060 (Version 1)
Quarter: 2020Q1

REPORT INFORMATION
  Report Type: Spontaneous
  Country: GB (occurrence: GB)
  Receive Date: 20200305
  Receipt Date: 20200305
  Transmission Date: 20200409
  Serious: Yes (Other)
  Sender: FDA-Public Use
  Company Number: GB-TEVA-2020-GB-1195033

PATIENT
  Age: 94 Year
  Sex: Female
  Weight: 84 kg

DRUGS (10)
  1. PROCTOSEDYL [Concomitant]
     Active Substance: DIBUCAINE HYDROCHLORIDE\HYDROCORTISONE
     Dosage: INSERT AS NEEDED
     Dates: start: 20191108, end: 20191115
  2. LAXIDO [Concomitant]
     Active Substance: POLYETHYLENE GLYCOL 3350\POTASSIUM CHLORIDE\SODIUM BICARBONATE\SODIUM CHLORIDE
     Dosage: TAKE 4 SACHETS DAY ONE AND INCREASE BY 2 SACHET...
     Dates: start: 20191108, end: 20191206
  3. TRIMETHOPRIM. [Suspect]
     Active Substance: TRIMETHOPRIM
     Dosage: 100 MG
     Dates: start: 20200103
  4. OMEPRAZOLE. [Concomitant]
     Active Substance: OMEPRAZOLE
     Indication: DYSPEPSIA
     Dates: start: 20190912
  5. COCODAMOL [Concomitant]
     Active Substance: ACETAMINOPHEN\CODEINE PHOSPHATE
     Dosage: TAKE ONE OR TWO UP TO FOUR TIMES DAILY
     Dates: start: 20191022, end: 20191119
  6. WARFARIN SODIUM. [Concomitant]
     Active Substance: WARFARIN SODIUM
     Dosage: TAKE AS DIRECTED IN YOUR YELLOW BOOK TO HELP PR...
     Dates: start: 20190912
  7. SPIRONOLACTONE. [Concomitant]
     Active Substance: SPIRONOLACTONE
     Dates: start: 20190912
  8. BUMETANIDE. [Concomitant]
     Active Substance: BUMETANIDE
     Dates: start: 20190912
  9. EDOXABAN [Concomitant]
     Active Substance: EDOXABAN TOSYLATE
     Dosage: TO HELP PREVENT BLOO...
     Dates: start: 20191227
  10. SCHERIPROCT [Concomitant]
     Active Substance: DIBUCAINE HYDROCHLORIDE\PREDNISOLONE
     Dosage: APPLY FOR 5 TO 7 DAYS, THEN ONCE DA...
     Dates: start: 20191108, end: 20191206

REACTIONS (1)
  - Swelling face [Recovered/Resolved]

NARRATIVE: CASE EVENT DATE: 20200108
